FAERS Safety Report 20411519 (Version 1)
Quarter: 2022Q1

REPORT INFORMATION
  Report Type: Spontaneous
  Country: GB (occurrence: GB)
  Receive Date: 20220201
  Receipt Date: 20220201
  Transmission Date: 20220424
  Serious: Yes (Death, Hospitalization)
  Sender: FDA-Public Use
  Company Number: GB-LDELTA-NLLD0036584

PATIENT
  Age: 60 Year
  Sex: Male

DRUGS (3)
  1. ADCETRIS [Suspect]
     Active Substance: BRENTUXIMAB VEDOTIN
     Indication: Lymphoma
     Dosage: UNK
     Route: 065
     Dates: start: 202108
  2. CLOZAPINE [Suspect]
     Active Substance: CLOZAPINE
     Dosage: 525 MILLIGRAM, QD
     Route: 048
     Dates: start: 20090202, end: 20210601
  3. CLOZAPINE [Suspect]
     Active Substance: CLOZAPINE
     Dosage: UNK
     Route: 048
     Dates: start: 20210621, end: 20220102

REACTIONS (6)
  - Disease recurrence [Fatal]
  - Contraindicated product administered [Not Recovered/Not Resolved]
  - Platelet count increased [Recovered/Resolved]
  - Liver function test abnormal [Unknown]
  - Platelet count decreased [Recovered/Resolved]
  - Constipation [Recovered/Resolved]

NARRATIVE: CASE EVENT DATE: 20210520
